FAERS Safety Report 13748957 (Version 1)
Quarter: 2017Q3

REPORT INFORMATION
  Report Type: Spontaneous
  Country: US (occurrence: US)
  Receive Date: 20170712
  Receipt Date: 20170712
  Transmission Date: 20171127
  Serious: Yes (Other)
  Sender: FDA-Public Use
  Company Number: None

PATIENT
  Age: 55 Year
  Sex: Male
  Weight: 75 kg

DRUGS (2)
  1. KRYSTEXXA [Suspect]
     Active Substance: PEGLOTICASE
     Indication: GOUT
     Dosage: ?          OTHER DOSE:MG;OTHER FREQUENCY:Q 2 WEEKS;?
     Route: 042
     Dates: start: 20170626
  2. NS [Concomitant]
     Active Substance: SODIUM CHLORIDE

REACTIONS (11)
  - Pain in jaw [None]
  - Anxiety [None]
  - Chest pain [None]
  - Pain [None]
  - Vomiting [None]
  - Lacrimation increased [None]
  - Dyspepsia [None]
  - Pruritus generalised [None]
  - Infusion related reaction [None]
  - Blood pressure increased [None]
  - Ocular hyperaemia [None]

NARRATIVE: CASE EVENT DATE: 20170710
